FAERS Safety Report 7971456-2 (Version None)
Quarter: 2011Q4

REPORT INFORMATION
  Report Type: 
  Country: None (occurrence: None)
  Receive Date: 20111212
  Receipt Date: 20111208
  Transmission Date: 20120403
  Serious: No
  Sender: FDA-Public Use
  Company Number: US-PFIZER INC-2011300985

PATIENT
  Sex: Female
  Weight: 57.596 kg

DRUGS (7)
  1. VENLAFAXINE HYDROCHLORIDE [Concomitant]
     Indication: ANTIDEPRESSANT THERAPY
     Dosage: 150 MG(ONCE IN MORNING),75 MG ( ONCE AT NIGHT)
  2. ACETYLSALICYLIC ACID [Concomitant]
     Dosage: 81 MG,DAILY
  3. NICOTROL [Suspect]
     Indication: SMOKING CESSATION THERAPY
     Dosage: 10 MG, AFTER EVERY HOUR
     Route: 045
     Dates: start: 20100101, end: 20100101
  4. SEROQUEL [Concomitant]
     Indication: BIPOLAR DISORDER
     Dosage: 100 MG,DAILY
  5. SIMVASTATIN [Concomitant]
     Indication: BLOOD CHOLESTEROL ABNORMAL
     Dosage: 20 MG,DAILY
  6. LEVOTHYROXINE [Concomitant]
     Indication: THYROID DISORDER
     Dosage: 50 UG,DAILY
  7. LISINOPRIL [Concomitant]
     Indication: BLOOD PRESSURE ABNORMAL
     Dosage: 20 MG,DAILY

REACTIONS (6)
  - NASAL DISCOMFORT [None]
  - DISCOMFORT [None]
  - APPLICATION SITE REACTION [None]
  - DYSGEUSIA [None]
  - INAPPROPRIATE SCHEDULE OF DRUG ADMINISTRATION [None]
  - UPPER-AIRWAY COUGH SYNDROME [None]
